FAERS Safety Report 9764174 (Version 2)
Quarter: 2014Q1

REPORT INFORMATION
  Report Type: Spontaneous
  Country: US (occurrence: US)
  Receive Date: 20131216
  Receipt Date: 20140103
  Transmission Date: 20141002
  Serious: No
  Sender: FDA-Public Use
  Company Number: US-009507513-1312USA007121

PATIENT
  Age: 64 Year
  Sex: Female
  Weight: 83.9 kg

DRUGS (9)
  1. OXYTROL FOR WOMEN [Suspect]
     Indication: URGE INCONTINENCE
     Dosage: 1 DF, Q4D
     Route: 062
     Dates: start: 201310
  2. QUINAPRIL HYDROCHLORIDE [Concomitant]
     Indication: HYPERTENSION
     Dosage: UNK, UNKNOWN
  3. CRESTOR [Concomitant]
     Indication: PRODUCT USED FOR UNKNOWN INDICATION
     Dosage: UNK, UNKNOWN
  4. TYLENOL [Concomitant]
     Indication: OSTEOARTHRITIS
     Dosage: UNK, UNKNOWN
  5. TYLENOL [Concomitant]
     Indication: BURSITIS
  6. TYLENOL [Concomitant]
     Indication: INTERVERTEBRAL DISC COMPRESSION
  7. HYDROCODONE [Concomitant]
     Indication: OSTEOARTHRITIS
     Dosage: UNK, UNKNOWN
  8. HYDROCODONE [Concomitant]
     Indication: BURSITIS
  9. HYDROCODONE [Concomitant]
     Indication: INTERVERTEBRAL DISC COMPRESSION

REACTIONS (2)
  - Application site erythema [Unknown]
  - Product quality issue [Unknown]
